FAERS Safety Report 5344319-9 (Version None)
Quarter: 2007Q2

REPORT INFORMATION
  Report Type: 
  Country: None (occurrence: None)
  Receive Date: 20070604
  Receipt Date: 20070525
  Transmission Date: 20071010
  Serious: Yes (Hospitalization)
  Sender: FDA-Public Use
  Company Number: PHHO2006TW15663

PATIENT
  Age: 46 Year
  Sex: Male

DRUGS (6)
  1. RAD001A [Suspect]
     Indication: HEART TRANSPLANT
     Dosage: 0.25 MG, BID
     Route: 048
     Dates: start: 20041229
  2. RAD001A [Suspect]
     Dosage: 1 MG DAILY
     Route: 048
  3. NEORAL [Suspect]
     Indication: HEART TRANSPLANT
     Dosage: 50 MG, BID
     Route: 048
  4. PREDNISONE TAB [Concomitant]
     Indication: HEART TRANSPLANT
     Dosage: 5 MG DAILY
     Route: 048
  5. MAGNESIUM OXIDE [Concomitant]
  6. ASPIRIN [Concomitant]

REACTIONS (5)
  - GASTRIC ULCER [None]
  - GASTRITIS [None]
  - HAEMATEMESIS [None]
  - OESOPHAGEAL ULCER [None]
  - UPPER GASTROINTESTINAL HAEMORRHAGE [None]
